FAERS Safety Report 20954670 (Version 1)
Quarter: 2022Q2

REPORT INFORMATION
  Report Type: Spontaneous
  Country: JP (occurrence: JP)
  Receive Date: 20220614
  Receipt Date: 20220614
  Transmission Date: 20220720
  Serious: Yes (Hospitalization)
  Sender: FDA-Public Use
  Company Number: JP-TAKEDA-2022TJP058116

PATIENT
  Age: 9 Decade
  Sex: Female

DRUGS (1)
  1. METACT [Suspect]
     Active Substance: METFORMIN HYDROCHLORIDE\PIOGLITAZONE HYDROCHLORIDE
     Indication: Product used for unknown indication
     Dosage: DOSAGE IS UNKNOWN
     Route: 048

REACTIONS (1)
  - Hospitalisation [Unknown]
